FAERS Safety Report 7818326-8 (Version None)
Quarter: 2011Q4

REPORT INFORMATION
  Report Type: 
  Country: None (occurrence: None)
  Receive Date: 20111017
  Receipt Date: 20111015
  Transmission Date: 20120403
  Serious: Yes (Other)
  Sender: FDA-Public Use
  Company Number: US-PFIZER INC-2011247033

PATIENT
  Sex: Female

DRUGS (3)
  1. LIPITOR [Suspect]
     Indication: BLOOD CHOLESTEROL ABNORMAL
     Dosage: UNK, 2X/DAY
     Route: 048
     Dates: end: 20110501
  2. KOMBIGLYZE XR [Suspect]
     Indication: TYPE 2 DIABETES MELLITUS
     Dosage: UNK, 2X/DAY
     Route: 048
     Dates: start: 20111014
  3. LIPITOR [Suspect]
     Dosage: UNK, 2X/DAY
     Dates: start: 20111014

REACTIONS (3)
  - DYSPNOEA [None]
  - MUSCLE SPASMS [None]
  - MYALGIA [None]
